FAERS Safety Report 6524329-6 (Version None)
Quarter: 2009Q4

REPORT INFORMATION
  Report Type: 
  Country: None (occurrence: None)
  Receive Date: 20091231
  Receipt Date: 20091228
  Transmission Date: 20100525
  Serious: Yes (Death)
  Sender: FDA-Public Use
  Company Number: FR-MERCK-0912FRA00079

PATIENT
  Age: 78 Year
  Sex: Male

DRUGS (16)
  1. JANUVIA [Suspect]
     Indication: DIABETES MELLITUS INADEQUATE CONTROL
     Route: 048
     Dates: start: 20080529, end: 20081029
  2. METFORMIN HYDROCHLORIDE [Suspect]
     Indication: DIABETES MELLITUS INADEQUATE CONTROL
     Route: 048
     Dates: start: 20080529, end: 20081029
  3. INSULIN DETEMIR [Concomitant]
     Indication: DIABETES MELLITUS INADEQUATE CONTROL
     Route: 058
     Dates: start: 20081029, end: 20090204
  4. INSULIN ASPART [Concomitant]
     Indication: DIABETES MELLITUS INADEQUATE CONTROL
     Route: 058
     Dates: start: 20081029, end: 20090204
  5. BISOPROLOL FUMARATE [Concomitant]
     Route: 048
  6. LERCANIDIPINE HYDROCHLORIDE [Concomitant]
     Route: 048
  7. CLOPIDOGREL BISULFATE [Concomitant]
     Route: 048
  8. ASPIRIN AND PRAVASTATIN SODIUM [Concomitant]
     Route: 065
  9. PANTOPRAZOLE SODIUM [Concomitant]
     Route: 048
  10. DOMPERIDONE [Concomitant]
     Route: 065
  11. TAMSULOSIN HYDROCHLORIDE [Concomitant]
     Route: 048
  12. FUROSEMIDE [Concomitant]
     Route: 048
  13. FLUTICASONE PROPIONATE AND SALMETEROL XINAFOATE [Concomitant]
     Route: 065
  14. TIOTROPIUM BROMIDE [Concomitant]
     Route: 048
  15. GLYBURIDE AND METFORMIN HYDROCHLORIDE [Concomitant]
     Indication: DIABETES MELLITUS INADEQUATE CONTROL
     Route: 065
     Dates: start: 20050101, end: 20080528
  16. RIMONABANT [Concomitant]
     Route: 065
     Dates: start: 20050101, end: 20080528

REACTIONS (1)
  - RENAL FAILURE [None]
